FAERS Safety Report 12186000 (Version 2)
Quarter: 2016Q2

REPORT INFORMATION
  Report Type: Spontaneous
  Country: US (occurrence: US)
  Receive Date: 20160317
  Receipt Date: 20160415
  Transmission Date: 20160815
  Serious: Yes (Death)
  Sender: FDA-Public Use
  Company Number: US-ROCHE-1727420

PATIENT
  Age: 80 Year
  Sex: Female

DRUGS (1)
  1. ACTEMRA [Suspect]
     Active Substance: TOCILIZUMAB
     Indication: ARTHRITIS
     Route: 058
     Dates: start: 201510, end: 201601

REACTIONS (1)
  - Death [Fatal]

NARRATIVE: CASE EVENT DATE: 20160115
